FAERS Safety Report 4674065-6 (Version None)
Quarter: 2005Q2

REPORT INFORMATION
  Report Type: 
  Country: None (occurrence: None)
  Receive Date: 20050525
  Receipt Date: 20050517
  Transmission Date: 20051028
  Serious: Yes (Death, Hospitalization)
  Sender: FDA-Public Use
  Company Number: 200511589GDS

PATIENT
  Age: 76 Year
  Sex: Male

DRUGS (1)
  1. ASPIRIN [Suspect]
     Indication: CEREBRAL INFARCTION

REACTIONS (10)
  - ANAEMIA [None]
  - CARDIO-RESPIRATORY ARREST [None]
  - DUODENAL VARICES [None]
  - HEPATIC NEOPLASM MALIGNANT [None]
  - METABOLIC ACIDOSIS [None]
  - MULTI-ORGAN FAILURE [None]
  - PORTAL VEIN THROMBOSIS [None]
  - SHOCK [None]
  - SMALL INTESTINAL HAEMORRHAGE [None]
  - TUMOUR EMBOLISM [None]
